FAERS Safety Report 10530424 (Version 1)
Quarter: 2014Q4

REPORT INFORMATION
  Report Type: Spontaneous
  Country: TW (occurrence: None)
  Receive Date: 20141017
  Receipt Date: 20141017
  Transmission Date: 20150528
  Serious: Yes (Hospitalization, Other)
  Sender: FDA-Public Use
  Company Number: 2014SCAL000166

PATIENT
  Age: 60 Year
  Sex: Male

DRUGS (7)
  1. TERAZOSIN [Concomitant]
     Active Substance: TERAZOSIN\TERAZOSIN HYDROCHLORIDE
  2. METFORMIN [Concomitant]
     Active Substance: METFORMIN HYDROCHLORIDE
  3. LABETALOL [Concomitant]
     Active Substance: LABETALOL\LABETALOL HYDROCHLORIDE
  4. ASPIRIN (ACETYLSALICYLIC ACID) [Concomitant]
     Active Substance: ASPIRIN
  5. GLIMEPIRIDE. [Concomitant]
     Active Substance: GLIMEPIRIDE
  6. FAMOTIDINE. [Suspect]
     Active Substance: FAMOTIDINE
     Indication: PEPTIC ULCER
     Dosage: UNK
  7. NIFEDIPINE. [Concomitant]
     Active Substance: NIFEDIPINE

REACTIONS (11)
  - Eosinophilia [None]
  - Quadriparesis [None]
  - Mental impairment [None]
  - Intracardiac thrombus [None]
  - Troponin I increased [None]
  - Cerebral infarction [None]
  - Blood creatine phosphokinase MB increased [None]
  - Muscular weakness [None]
  - Dysarthria [None]
  - Dysphagia [None]
  - Leukocytosis [None]
